FAERS Safety Report 6469856-5 (Version None)
Quarter: 2009Q4

REPORT INFORMATION
  Report Type: 
  Country: None (occurrence: None)
  Receive Date: 20091203
  Receipt Date: 20091126
  Transmission Date: 20100525
  Serious: Yes (Hospitalization)
  Sender: FDA-Public Use
  Company Number: DE-ROCHE-672121

PATIENT
  Age: 80 Year

DRUGS (2)
  1. CAPECITABINE [Suspect]
     Indication: DRUG USE FOR UNKNOWN INDICATION
     Route: 065
     Dates: start: 20090527, end: 20090530
  2. CAPECITABINE [Suspect]
     Dosage: REINTRODUCED ON UNREPORTED DATE.
     Route: 065

REACTIONS (2)
  - ANGINA PECTORIS [None]
  - VASOSPASM [None]
